FAERS Safety Report 9375811 (Version 2)
Quarter: 2013Q3

REPORT INFORMATION
  Report Type: Report from Study
  Country: JP (occurrence: JP)
  Receive Date: 20130628
  Receipt Date: 20130715
  Transmission Date: 20140515
  Serious: Yes (Other)
  Sender: FDA-Public Use
  Company Number: JP-AMGEN-JPNCT2013045674

PATIENT
  Age: 73 Year
  Sex: Male
  Weight: 52 kg

DRUGS (7)
  1. DENOSUMAB [Suspect]
     Indication: METASTASES TO BONE
     Dosage: 120 MG, UNK
     Route: 058
     Dates: start: 20120718
  2. ASPARA-CA [Concomitant]
     Dosage: UNK
     Route: 048
     Dates: start: 20120718, end: 20120729
  3. ALFAROL [Concomitant]
     Dosage: UNK
     Route: 048
     Dates: start: 20120718, end: 20120828
  4. ROCALTROL [Concomitant]
     Dosage: UNK
  5. CASODEX [Concomitant]
     Dosage: UNK
     Route: 065
     Dates: start: 20120718, end: 20121125
  6. LEUPLIN [Concomitant]
     Dosage: UNK
     Route: 065
     Dates: start: 20120718
  7. GASTER [Concomitant]
     Dosage: UNK
     Route: 048
     Dates: start: 20120718, end: 20121220

REACTIONS (3)
  - Back pain [Not Recovered/Not Resolved]
  - Back pain [Not Recovered/Not Resolved]
  - Hypophosphataemia [Not Recovered/Not Resolved]
